FAERS Safety Report 6311596-7 (Version None)
Quarter: 2009Q3

REPORT INFORMATION
  Report Type: 
  Country: None (occurrence: None)
  Receive Date: 20090817
  Receipt Date: 20090810
  Transmission Date: 20100115
  Serious: Yes (Hospitalization)
  Sender: FDA-Public Use
  Company Number: A0797534A

PATIENT
  Age: 53 Year
  Sex: Female

DRUGS (3)
  1. TYKERB [Suspect]
     Indication: BREAST CANCER
     Dosage: 1250MG PER DAY
     Route: 048
     Dates: start: 20090702, end: 20090718
  2. XELODA [Suspect]
  3. BENAZEPRIL HYDROCHLORIDE [Concomitant]

REACTIONS (5)
  - DECREASED APPETITE [None]
  - DRY SKIN [None]
  - PAIN IN EXTREMITY [None]
  - PALMAR-PLANTAR ERYTHRODYSAESTHESIA SYNDROME [None]
  - SKIN DISCOLOURATION [None]
